FAERS Safety Report 9127711 (Version 2)
Quarter: 2013Q2

REPORT INFORMATION
  Report Type: Spontaneous
  Country: US (occurrence: US)
  Receive Date: 20130228
  Receipt Date: 20130417
  Transmission Date: 20140414
  Serious: No
  Sender: FDA-Public Use
  Company Number: US-PFIZER INC-2013069204

PATIENT
  Age: 74 Year
  Sex: Male

DRUGS (1)
  1. INLYTA [Suspect]
     Indication: METASTASES TO BONE
     Dosage: 5 MG, 2X/DAY
     Route: 048

REACTIONS (3)
  - Disease progression [Unknown]
  - Metastases to bone [Unknown]
  - Off label use [Unknown]
